FAERS Safety Report 25529750 (Version 3)
Quarter: 2025Q4

REPORT INFORMATION
  Report Type: Report from Study
  Country: JP (occurrence: JP)
  Receive Date: 20250708
  Receipt Date: 20251127
  Transmission Date: 20260118
  Serious: Yes (Other)
  Sender: BIOGEN
  Company Number: JP-BIOGEN-2025BI01315978

PATIENT
  Age: 36 Year
  Sex: Male
  Weight: 64.2 kg

DRUGS (4)
  1. QALSODY [Suspect]
     Active Substance: TOFERSEN
     Indication: Amyotrophic lateral sclerosis
  2. RILUZOLE [Concomitant]
     Active Substance: RILUZOLE
     Indication: Amyotrophic lateral sclerosis
  3. EDARAVONE [Concomitant]
     Active Substance: EDARAVONE
     Indication: Amyotrophic lateral sclerosis
  4. High-dose mecobalamin (intramuscular injection) [Concomitant]
     Indication: Amyotrophic lateral sclerosis
     Dosage: HIGH-DOSE

REACTIONS (1)
  - Headache [Not Recovered/Not Resolved]

NARRATIVE: CASE EVENT DATE: 20250626
